FAERS Safety Report 18695692 (Version 1)
Quarter: 2021Q1

REPORT INFORMATION
  Report Type: Spontaneous
  Country: CN (occurrence: CN)
  Receive Date: 20210104
  Receipt Date: 20210104
  Transmission Date: 20210419
  Serious: Yes (Other)
  Sender: FDA-Public Use
  Company Number: CN-PFIZER INC-2020514467

PATIENT
  Age: 10 Year
  Sex: Female
  Weight: 30 kg

DRUGS (3)
  1. GLUCOSE + SODIUM CHLORIDE [Suspect]
     Active Substance: DEXTROSE\SODIUM CHLORIDE
     Indication: SKIN LACERATION
     Dosage: 50 ML, 1X/DAY
     Route: 041
     Dates: start: 20201213, end: 20201213
  2. SOLU?MEDROL [Suspect]
     Active Substance: METHYLPREDNISOLONE SODIUM SUCCINATE
     Indication: SKIN LACERATION
     Dosage: 40 MG, 1X/DAY
     Route: 041
     Dates: start: 20201213, end: 20201213
  3. LIDOCAINE HYDROCHLORIDE. [Concomitant]
     Active Substance: LIDOCAINE HYDROCHLORIDE
     Indication: SKIN LACERATION
     Dosage: 5 ML, 1X/DAY
     Dates: start: 20201213, end: 20201213

REACTIONS (6)
  - Rash [Recovering/Resolving]
  - Pallor [Recovered/Resolved]
  - Monoparesis [Unknown]
  - Off label use [Unknown]
  - Mental impairment [Unknown]
  - Hypersensitivity [Recovering/Resolving]

NARRATIVE: CASE EVENT DATE: 20201213
